FAERS Safety Report 19211145 (Version 1)
Quarter: 2021Q2

REPORT INFORMATION
  Report Type: Spontaneous
  Country: US (occurrence: US)
  Receive Date: 20210504
  Receipt Date: 20210504
  Transmission Date: 20210717
  Serious: Yes (Other)
  Sender: FDA-Public Use
  Company Number: None

PATIENT
  Age: 40 Year
  Sex: Female
  Weight: 110.25 kg

DRUGS (7)
  1. ROSUVASTATIN 5MG [Suspect]
     Active Substance: ROSUVASTATIN
     Indication: BLOOD CHOLESTEROL INCREASED
     Dosage: ?          QUANTITY:1 TABLET(S);OTHER FREQUENCY:3 TIMES PER WEEK;?
     Route: 048
     Dates: start: 20210414, end: 20210503
  2. WOMENS MULTIVITAMIN [Concomitant]
  3. D3 1000MG [Concomitant]
  4. NAPROXEN 500MG [Concomitant]
     Active Substance: NAPROXEN
  5. PRILOSEC [Concomitant]
     Active Substance: OMEPRAZOLE MAGNESIUM
  6. MIRENA [Concomitant]
     Active Substance: LEVONORGESTREL
  7. CITALOPRAM [Concomitant]
     Active Substance: CITALOPRAM HYDROBROMIDE

REACTIONS (1)
  - Contusion [None]

NARRATIVE: CASE EVENT DATE: 20210419
